FAERS Safety Report 24273523 (Version 6)
Quarter: 2025Q1

REPORT INFORMATION
  Report Type: Spontaneous
  Country: IN (occurrence: IN)
  Receive Date: 20240902
  Receipt Date: 20250123
  Transmission Date: 20250408
  Serious: Yes (Other)
  Sender: PFIZER
  Company Number: IN-PFIZER INC-PV202400054605

PATIENT
  Age: 44 Year
  Sex: Female

DRUGS (9)
  1. LORLATINIB [Suspect]
     Active Substance: LORLATINIB
     Indication: Lung adenocarcinoma
     Dosage: 100 MG, 1X/DAY
     Route: 048
     Dates: start: 20240224
  2. LORLATINIB [Suspect]
     Active Substance: LORLATINIB
     Indication: Non-small cell lung cancer metastatic
  3. RIVAROXABAN [Concomitant]
     Active Substance: RIVAROXABAN
     Dosage: 15 MG, DAILY. REPEAT FTER 1 WEEK
  4. ROSUVASTATIN CALCIUM [Concomitant]
     Active Substance: ROSUVASTATIN CALCIUM
  5. APIXABAN [Concomitant]
     Active Substance: APIXABAN
     Indication: Deep vein thrombosis
  6. ZOLEDRONIC ACID [Concomitant]
     Active Substance: ZOLEDRONIC ACID
     Route: 042
  7. CALCIUM\CHOLECALCIFEROL [Concomitant]
     Active Substance: CALCIUM\CHOLECALCIFEROL
  8. ROSUVASTATIN CALCIUM [Concomitant]
     Active Substance: ROSUVASTATIN CALCIUM
  9. ZOLEDRONIC ACID [Concomitant]
     Active Substance: ZOLEDRONIC ACID
     Route: 042

REACTIONS (11)
  - Type 2 diabetes mellitus [Unknown]
  - Deep vein thrombosis [Recovered/Resolved]
  - Dyspnoea exertional [Unknown]
  - Back pain [Unknown]
  - Blood triglycerides increased [Not Recovered/Not Resolved]
  - Low density lipoprotein increased [Unknown]
  - Very low density lipoprotein increased [Recovered/Resolved]
  - Pain in extremity [Unknown]
  - Dyslipidaemia [Unknown]
  - Hyperglycaemia [Unknown]
  - Blood cholesterol increased [Unknown]

NARRATIVE: CASE EVENT DATE: 20240301
